FAERS Safety Report 14250664 (Version 2)
Quarter: 2018Q1

REPORT INFORMATION
  Report Type: Report from Study
  Country: None (occurrence: BR)
  Receive Date: 20171205
  Receipt Date: 20180330
  Transmission Date: 20180508
  Serious: Yes (Death, Hospitalization)
  Sender: FDA-Public Use
  Company Number: BR-ABBVIE-17K-020-2049261-00

PATIENT
  Age: 79 Year
  Sex: Female
  Weight: 30 kg

DRUGS (6)
  1. ATENOLOL. [Concomitant]
     Active Substance: ATENOLOL
     Indication: HYPERTENSION
  2. HUMIRA [Suspect]
     Active Substance: ADALIMUMAB
     Dosage: WEEK ONE
     Route: 058
     Dates: start: 2016, end: 201706
  3. HUMIRA [Suspect]
     Active Substance: ADALIMUMAB
     Indication: CROHN^S DISEASE
     Dosage: LOADING DOSE
     Route: 058
     Dates: start: 201601, end: 201601
  4. HUMIRA [Suspect]
     Active Substance: ADALIMUMAB
     Route: 058
     Dates: start: 201706, end: 201708
  5. HUMIRA [Suspect]
     Active Substance: ADALIMUMAB
     Route: 058
     Dates: start: 2017
  6. AZATHIOPRINE. [Concomitant]
     Active Substance: AZATHIOPRINE
     Indication: CROHN^S DISEASE

REACTIONS (11)
  - Anaemia [Recovering/Resolving]
  - Asthenia [Not Recovered/Not Resolved]
  - Diarrhoea [Unknown]
  - Malnutrition [Recovering/Resolving]
  - Pneumonia [Recovering/Resolving]
  - Pneumonia [Fatal]
  - Leukopenia [Recovering/Resolving]
  - Dehydration [Recovering/Resolving]
  - Abdominal rigidity [Not Recovered/Not Resolved]
  - Pain [Not Recovered/Not Resolved]
  - Malnutrition [Fatal]

NARRATIVE: CASE EVENT DATE: 201706
